FAERS Safety Report 20538126 (Version 1)
Quarter: 2022Q1

REPORT INFORMATION
  Report Type: Spontaneous
  Country: US (occurrence: None)
  Receive Date: 20220301
  Receipt Date: 20220301
  Transmission Date: 20220423
  Serious: Yes (Other)
  Sender: FDA-Public Use
  Company Number: None

PATIENT
  Age: 25 Year
  Sex: Female

DRUGS (1)
  1. INFED [Suspect]
     Active Substance: IRON DEXTRAN
     Dosage: OTHER FREQUENCY : ONCE;?
     Route: 042
     Dates: start: 20220202, end: 20220202

REACTIONS (4)
  - Headache [None]
  - Flushing [None]
  - Feeling hot [None]
  - Therapy interrupted [None]

NARRATIVE: CASE EVENT DATE: 20220202
